FAERS Safety Report 4473921-1 (Version None)
Quarter: 2004Q4

REPORT INFORMATION
  Report Type: 
  Country: None (occurrence: None)
  Receive Date: 20041008
  Receipt Date: 20040916
  Transmission Date: 20050328
  Serious: Yes (Hospitalization)
  Sender: FDA-Public Use
  Company Number: USA040978473

PATIENT
  Age: 75 Year
  Sex: Female

DRUGS (6)
  1. CYMBALTA [Suspect]
     Indication: PAIN IN EXTREMITY
     Dosage: 60 MG DAY
     Dates: start: 20040901, end: 20040901
  2. EFFEXOR [Concomitant]
  3. GALENIC/HYDROCHLOROTHIAZIDE/VALSARTAN/ [Concomitant]
  4. TEGASEROD MALEATE [Concomitant]
  5. PROTONIX [Concomitant]
  6. DARVOCET-N 100 [Concomitant]

REACTIONS (4)
  - ANXIETY [None]
  - CHEST PAIN [None]
  - DYSPNOEA [None]
  - PANIC ATTACK [None]
